FAERS Safety Report 6254426-4 (Version None)
Quarter: 2009Q3

REPORT INFORMATION
  Report Type: 
  Country: None (occurrence: None)
  Receive Date: 20090702
  Receipt Date: 20090622
  Transmission Date: 20100115
  Serious: Yes (Death)
  Sender: FDA-Public Use
  Company Number: US-BIOGENIDEC-2009BI019044

PATIENT
  Age: 60 Year
  Sex: Male
  Weight: 80 kg

DRUGS (11)
  1. TYSABRI [Suspect]
     Indication: MULTIPLE SCLEROSIS
     Route: 042
     Dates: start: 20090612, end: 20090612
  2. TOPROL-XL [Concomitant]
  3. DIOVAN [Concomitant]
  4. ASPIRIN [Concomitant]
  5. JANUVIA [Concomitant]
  6. ZETIA [Concomitant]
  7. INSULIN [Concomitant]
  8. WELLBUTRIN [Concomitant]
  9. SEROQUEL [Concomitant]
  10. AMBIEN [Concomitant]
  11. ARICEPT [Concomitant]

REACTIONS (1)
  - SUDDEN CARDIAC DEATH [None]
